FAERS Safety Report 15148751 (Version 1)
Quarter: 2018Q3

REPORT INFORMATION
  Report Type: Spontaneous
  Country: ES (occurrence: ES)
  Receive Date: 20180716
  Receipt Date: 20180716
  Transmission Date: 20181010
  Serious: Yes (Other)
  Sender: FDA-Public Use
  Company Number: ES-LEO PHARMA-309852

PATIENT
  Age: 49 Year
  Sex: Male

DRUGS (5)
  1. DAIVOBET [Suspect]
     Active Substance: BETAMETHASONE DIPROPIONATE\CALCIPOTRIENE
     Dosage: THE FIRST 15 DAYS OF TREATMENT THE OINTMENT WAS APPLIED ONCE A DAY AND AFTERWARDS TWICE A WEEK (MOND
     Dates: start: 201801, end: 201803
  2. FUCICORT [Suspect]
     Active Substance: BETAMETHASONE VALERATE\FUSIDIC ACID
     Indication: INFECTION
     Dosage: THE PATIENT WAS PRESCRIBED 15 DAYS
  3. DAIVOBET [Suspect]
     Active Substance: BETAMETHASONE DIPROPIONATE\CALCIPOTRIENE
     Indication: PSORIASIS
     Dosage: THE FIRST 15 DAYS OF TREATMENT THE OINTMENT WAS APPLIED ONCE A DAY AND AFTERWARDS TWICE A WEEK (MOND
     Dates: start: 201709, end: 201712
  4. ENALAPRIL [Concomitant]
     Active Substance: ENALAPRIL
     Indication: HYPERTENSION
     Dates: start: 20180623
  5. FUCICORT [Suspect]
     Active Substance: BETAMETHASONE VALERATE\FUSIDIC ACID
     Indication: DERMATITIS

REACTIONS (2)
  - Carcinoma in situ of penis [Not Recovered/Not Resolved]
  - Product administered at inappropriate site [Unknown]

NARRATIVE: CASE EVENT DATE: 20180625
